FAERS Safety Report 6831369-6 (Version None)
Quarter: 2010Q3

REPORT INFORMATION
  Report Type: 
  Country: None (occurrence: None)
  Receive Date: 20100712
  Receipt Date: 20100705
  Transmission Date: 20110219
  Serious: Yes (Hospitalization)
  Sender: FDA-Public Use
  Company Number: DE-SANOFI-AVENTIS-2010SA035880

PATIENT
  Age: 55 Year
  Sex: Female
  Weight: 56 kg

DRUGS (7)
  1. DOCETAXEL [Suspect]
     Indication: BREAST CANCER
     Route: 041
     Dates: start: 20100616, end: 20100616
  2. CYCLOPHOSPHAMIDE [Suspect]
     Indication: BREAST CANCER
     Route: 041
     Dates: start: 20100616, end: 20100616
  3. DEXAMETHASONE ACETATE [Concomitant]
     Indication: PROPHYLAXIS
     Route: 048
     Dates: start: 20100615, end: 20100615
  4. DEXAMETHASONE ACETATE [Concomitant]
     Route: 042
     Dates: start: 20100616, end: 20100616
  5. GRANISETRON HCL [Concomitant]
     Indication: PROPHYLAXIS
     Route: 042
     Dates: start: 20100616, end: 20100616
  6. MESNA [Concomitant]
     Indication: PROPHYLAXIS
     Route: 041
     Dates: start: 20100616, end: 20100616
  7. MESNA [Concomitant]
     Route: 048
     Dates: start: 20100616, end: 20100616

REACTIONS (1)
  - PANCREATITIS ACUTE [None]
